FAERS Safety Report 15736929 (Version 7)
Quarter: 2019Q2

REPORT INFORMATION
  Report Type: Report from Study
  Country: US (occurrence: US)
  Receive Date: 20181218
  Receipt Date: 20190603
  Transmission Date: 20190711
  Serious: Yes (Hospitalization)
  Sender: FDA-Public Use
  Company Number: US-ACTELION-A-NJ2016-147573

PATIENT
  Age: 78 Year
  Sex: Male
  Weight: 140.59 kg

DRUGS (12)
  1. VENTOLIN [Concomitant]
     Active Substance: ALBUTEROL SULFATE
     Dosage: 1 PUFF PRN
  2. OPSUMIT [Suspect]
     Active Substance: MACITENTAN
     Indication: PULMONARY ARTERIAL HYPERTENSION
     Dosage: 10 MG, QD
     Route: 048
     Dates: start: 20140116
  3. ADCIRCA [Concomitant]
     Active Substance: TADALAFIL
  4. FERROUS GLUCONATE [Concomitant]
     Active Substance: FERROUS GLUCONATE
     Dosage: 324 MG
     Route: 048
  5. TYVASO [Suspect]
     Active Substance: TREPROSTINIL
     Dosage: 3 BREATHS / SESSION
     Route: 055
  6. TADALAFIL. [Concomitant]
     Active Substance: TADALAFIL
  7. LASIX [Concomitant]
     Active Substance: FUROSEMIDE
     Dosage: 120 MG, QD
     Route: 048
  8. TYVASO [Suspect]
     Active Substance: TREPROSTINIL
     Indication: PRODUCT USED FOR UNKNOWN INDICATION
     Dosage: 4 BREATHS, QID
     Route: 055
  9. AMLODIPINE [Concomitant]
     Active Substance: AMLODIPINE BESYLATE
  10. ELIQUIS [Concomitant]
     Active Substance: APIXABAN
     Dosage: 5 MG
  11. DIGOXIN. [Concomitant]
     Active Substance: DIGOXIN
     Dosage: 0.125 MG, QD
     Route: 048
  12. TUDORZA PRESSAIR [Concomitant]
     Active Substance: ACLIDINIUM BROMIDE
     Dosage: 400 MCG, BID
     Route: 055

REACTIONS (23)
  - Gastrointestinal haemorrhage [Unknown]
  - Cardiomegaly [Unknown]
  - Transfusion [Unknown]
  - Hiatus hernia [Unknown]
  - Cough [Unknown]
  - Hospitalisation [Recovered/Resolved]
  - Large intestine polyp [Unknown]
  - Haemoglobin decreased [Unknown]
  - Dyspnoea [Not Recovered/Not Resolved]
  - Large intestinal polypectomy [Unknown]
  - Haemorrhoids [Unknown]
  - Secretion discharge [Not Recovered/Not Resolved]
  - Rhinorrhoea [Unknown]
  - Fatigue [Not Recovered/Not Resolved]
  - Iron deficiency anaemia [Unknown]
  - Haemorrhage [Unknown]
  - Occult blood positive [Unknown]
  - Faeces discoloured [Not Recovered/Not Resolved]
  - Right ventricular hypertrophy [Unknown]
  - Anaemia [Unknown]
  - Iron binding capacity total abnormal [Unknown]
  - Productive cough [Unknown]
  - Epistaxis [Unknown]

NARRATIVE: CASE EVENT DATE: 20190306
